FAERS Safety Report 5765334-7 (Version None)
Quarter: 2008Q2

REPORT INFORMATION
  Report Type: 
  Country: None (occurrence: None)
  Receive Date: 20080611
  Receipt Date: 20080604
  Transmission Date: 20081010
  Serious: Yes (Hospitalization)
  Sender: FDA-Public Use
  Company Number: JP-BAYER-200810817BYL

PATIENT
  Age: 81 Year
  Sex: Female

DRUGS (4)
  1. ASPIRIN [Suspect]
     Indication: ANGINA PECTORIS
     Route: 048
     Dates: start: 20050928, end: 20051228
  2. ASPIRIN [Suspect]
     Route: 048
     Dates: start: 20060102, end: 20060203
  3. VOLTAREN SUPPSITORY [Suspect]
     Indication: BACK PAIN
     Route: 054
     Dates: start: 20050101, end: 20050101
  4. MOBIC [Suspect]
     Indication: BACK PAIN
     Route: 048
     Dates: start: 20051217, end: 20051228

REACTIONS (2)
  - MELAENA [None]
  - SMALL INTESTINE ULCER [None]
